FAERS Safety Report 12984998 (Version 1)
Quarter: 2016Q4

REPORT INFORMATION
  Report Type: Spontaneous
  Country: ES (occurrence: ES)
  Receive Date: 20161129
  Receipt Date: 20161129
  Transmission Date: 20170207
  Serious: Yes (Other)
  Sender: FDA-Public Use
  Company Number: ALCN2016ES007873

PATIENT
  Age: 75 Year
  Sex: Male

DRUGS (5)
  1. ZARELIS [Suspect]
     Active Substance: VENLAFAXINE HYDROCHLORIDE
     Indication: PRODUCT USED FOR UNKNOWN INDICATION
     Dosage: 1 DF, QD
     Route: 048
     Dates: start: 20161110, end: 20161112
  2. MAXIDEX [Suspect]
     Active Substance: DEXAMETHASONE
     Indication: EYE PAIN
     Dosage: UNK
     Route: 047
     Dates: start: 201604
  3. LORMETAZEPAM [Suspect]
     Active Substance: LORMETAZEPAM
     Indication: PRODUCT USED FOR UNKNOWN INDICATION
     Dosage: UNK
     Route: 065
     Dates: start: 20161110
  4. COLIRCUSI ATROPINE [Suspect]
     Active Substance: ATROPINE SULFATE
     Indication: EYE PAIN
     Dosage: UNK
     Route: 047
     Dates: start: 20160414
  5. MONOPROST [Suspect]
     Active Substance: LATANOPROST
     Indication: EYE PAIN
     Dosage: UNK
     Route: 065
     Dates: start: 201604

REACTIONS (1)
  - Urinary retention [Unknown]

NARRATIVE: CASE EVENT DATE: 20161112
